FAERS Safety Report 16710583 (Version 1)
Quarter: 2019Q3

REPORT INFORMATION
  Report Type: Spontaneous
  Country: BR (occurrence: BR)
  Receive Date: 20190816
  Receipt Date: 20190816
  Transmission Date: 20191004
  Serious: Yes (Other)
  Sender: FDA-Public Use
  Company Number: BR-PFIZER INC-2019349287

PATIENT
  Sex: Female

DRUGS (1)
  1. LORAX [LORAZEPAM] [Suspect]
     Active Substance: LORAZEPAM
     Indication: INSOMNIA

REACTIONS (5)
  - Product use issue [Unknown]
  - Gastrooesophageal reflux disease [Unknown]
  - Product use in unapproved indication [Unknown]
  - Glaucoma [Unknown]
  - Off label use [Unknown]
